FAERS Safety Report 4892972-6 (Version None)
Quarter: 2005Q4

REPORT INFORMATION
  Report Type: 
  Country: None (occurrence: None)
  Receive Date: 20051220
  Receipt Date: 20050906
  Transmission Date: 20060501
  Serious: Yes (Other)
  Sender: FDA-Public Use
  Company Number: 417492

PATIENT
  Sex: Female

DRUGS (1)
  1. BONIVA [Suspect]
     Dosage: 150 MG 1 PER MONTH ORAL
     Route: 048

REACTIONS (7)
  - ARTHRALGIA [None]
  - BACK PAIN [None]
  - DIFFICULTY IN WALKING [None]
  - DYSPHAGIA [None]
  - MUSCLE SPASMS [None]
  - NECK PAIN [None]
  - PAIN [None]
